FAERS Safety Report 9060475 (Version 5)
Quarter: 2014Q3

REPORT INFORMATION
  Report Type: Report from Study
  Country: DE (occurrence: DE)
  Receive Date: 20130212
  Receipt Date: 20140805
  Transmission Date: 20150326
  Serious: Yes (Hospitalization, Other)
  Sender: FDA-Public Use
  Company Number: PHHO2011DE06072

PATIENT

DRUGS (10)
  1. NEBIVOLOL [Concomitant]
     Active Substance: NEBIVOLOL
     Dosage: 5 MG, BID
     Route: 048
     Dates: start: 20110404
  2. SIMVASTATIN. [Concomitant]
     Active Substance: SIMVASTATIN
     Indication: PROPHYLAXIS
     Dosage: 40 MG, UNK
     Route: 048
     Dates: start: 19960409, end: 20110330
  3. SPIRONOLACTONE. [Concomitant]
     Active Substance: SPIRONOLACTONE
     Indication: CARDIAC FAILURE CHRONIC
     Dosage: 25 MG, UNK
     Route: 048
     Dates: start: 20000323, end: 20110330
  4. NEBIVOLOL [Concomitant]
     Active Substance: NEBIVOLOL
     Indication: CARDIAC FAILURE CHRONIC
     Dosage: 5 MG, UNK
     Route: 048
     Dates: start: 20090317
  5. FALITHROM [Concomitant]
     Active Substance: PHENPROCOUMON
     Indication: PROPHYLAXIS
     Dosage: 3 MG, UNK
     Route: 048
     Dates: start: 19990517, end: 20110315
  6. ASPIRIN. [Suspect]
     Active Substance: ASPIRIN
     Dosage: 100 MG, UNK
     Route: 048
     Dates: start: 19960409, end: 20110414
  7. ALLOPURINOL. [Concomitant]
     Active Substance: ALLOPURINOL
     Indication: HYPERURICAEMIA
     Dosage: 300 MG, UNK
     Route: 048
     Dates: start: 19930227, end: 20110330
  8. TORASEMIDE [Concomitant]
     Active Substance: TORSEMIDE
     Dosage: 20 MG, UNK
     Route: 048
  9. TORASEMIDE [Concomitant]
     Active Substance: TORSEMIDE
     Indication: CARDIAC FAILURE CONGESTIVE
     Dosage: 10 MG, UNK
     Route: 048
     Dates: start: 19990601
  10. LCZ696 [Suspect]
     Active Substance: INVESTIGATIONAL PRODUCT
     Indication: CARDIAC FAILURE CHRONIC
     Dosage: 200 MG, BID
     Route: 048
     Dates: start: 20110120, end: 20110322

REACTIONS (10)
  - Lumbar vertebral fracture [Recovered/Resolved]
  - Disease progression [Recovered/Resolved]
  - Haematuria [Recovered/Resolved with Sequelae]
  - Colitis ischaemic [Recovered/Resolved]
  - Sepsis [Recovered/Resolved]
  - Cardiac failure [Recovered/Resolved]
  - Adenocarcinoma [Recovered/Resolved]
  - Renal failure acute [Recovered/Resolved with Sequelae]
  - Urinary tract infection [Recovered/Resolved with Sequelae]
  - Concomitant disease progression [Recovered/Resolved]

NARRATIVE: CASE EVENT DATE: 20110322
